FAERS Safety Report 8781500 (Version 5)
Quarter: 2013Q1

REPORT INFORMATION
  Report Type: Spontaneous
  Country: US (occurrence: US)
  Receive Date: 20120913
  Receipt Date: 20130218
  Transmission Date: 20140127
  Serious: Yes (Hospitalization, Other)
  Sender: FDA-Public Use
  Company Number: US-009507513-1201USA03049

PATIENT
  Sex: Female
  Weight: 63.49 kg

DRUGS (5)
  1. FOSAMAX [Suspect]
     Indication: OSTEOPENIA
     Dosage: 10 MG, UNK
     Route: 048
     Dates: start: 1998, end: 2002
  2. FOSAMAX [Suspect]
     Dosage: 70 MG, UNK
     Route: 048
     Dates: start: 2002, end: 200802
  3. FOSAMAX [Suspect]
     Dosage: 5 MG, QD
     Route: 048
     Dates: start: 19980914
  4. ALENDRONATE SODIUM [Suspect]
     Indication: OSTEOPENIA
     Dosage: 70 MG, QW
     Route: 048
     Dates: start: 200802, end: 2009
  5. HORMONES (UNSPECIFIED) [Concomitant]
     Indication: PRODUCT USED FOR UNKNOWN INDICATION
     Dosage: UNK
     Dates: start: 1977, end: 2000

REACTIONS (30)
  - Femur fracture [Unknown]
  - Fall [Unknown]
  - Open reduction of fracture [Unknown]
  - Device failure [Unknown]
  - Transfusion [Unknown]
  - Intramedullary rod insertion [Unknown]
  - Ankle fracture [Unknown]
  - Osteoporosis [Unknown]
  - Vitamin D deficiency [Unknown]
  - Medical device complication [Unknown]
  - Tooth extraction [Unknown]
  - Bipolar disorder [Unknown]
  - Dental prosthesis placement [Unknown]
  - Hypotension [Unknown]
  - Haemorrhagic anaemia [Unknown]
  - Polycystic ovaries [Unknown]
  - Pollakiuria [Unknown]
  - Micturition urgency [Unknown]
  - Occult blood positive [Recovered/Resolved]
  - Tremor [Recovered/Resolved]
  - Fatigue [Unknown]
  - Dyspnoea exertional [Unknown]
  - Cellulitis [Unknown]
  - Depression [Unknown]
  - Gastroenteritis [Unknown]
  - Insomnia [Unknown]
  - Migraine [Unknown]
  - Blood calcium decreased [Unknown]
  - Arthralgia [Unknown]
  - Arthralgia [Unknown]
